FAERS Safety Report 17960421 (Version 8)
Quarter: 2022Q1

REPORT INFORMATION
  Report Type: Spontaneous
  Country: GB (occurrence: GB)
  Receive Date: 20200629
  Receipt Date: 20220311
  Transmission Date: 20220424
  Serious: Yes (Hospitalization, Other)
  Sender: FDA-Public Use
  Company Number: NVSC2020GB180301

PATIENT
  Age: 16 Year
  Sex: Female
  Weight: 57.2 kg

DRUGS (40)
  1. AZATHIOPRINE [Suspect]
     Active Substance: AZATHIOPRINE
     Indication: Crohn^s disease
     Dosage: 100 MG, QD
     Route: 048
     Dates: start: 20121011, end: 20181011
  2. METHOTREXATE [Suspect]
     Active Substance: METHOTREXATE
     Indication: Crohn^s disease
     Dosage: 22.5 MG, QW
     Route: 048
     Dates: start: 20121011, end: 20190614
  3. METHOTREXATE [Suspect]
     Active Substance: METHOTREXATE
     Dosage: 22.5 MG, QW
     Route: 048
     Dates: start: 20181018
  4. METHOTREXATE [Suspect]
     Active Substance: METHOTREXATE
     Dosage: 22.5 MG, QW
     Route: 048
     Dates: start: 20190628, end: 20200328
  5. METHOTREXATE [Suspect]
     Active Substance: METHOTREXATE
     Dosage: 22.5 MG, QW
     Route: 048
     Dates: start: 20200418
  6. HUMIRA [Suspect]
     Active Substance: ADALIMUMAB
     Indication: Crohn^s disease
     Dosage: 40 MG, Q2W
     Route: 058
     Dates: start: 20131209, end: 20180430
  7. HUMIRA [Suspect]
     Active Substance: ADALIMUMAB
     Dosage: 40 MG, QW
     Route: 058
     Dates: start: 20180507, end: 20190325
  8. BETNOVATE [Concomitant]
     Active Substance: BETAMETHASONE
     Indication: Seborrhoeic dermatitis
     Dosage: UNK (ALTERNATE DAYS FOR TWO WEEKS THEN ONCE WEEKLY)
     Route: 061
     Dates: start: 20191128
  9. CHLORPHENIRAMINE MALEATE [Concomitant]
     Active Substance: CHLORPHENIRAMINE MALEATE
     Indication: Pruritus
     Dosage: 4 MG, PRN
     Route: 048
     Dates: start: 20190704
  10. CHLORPHENIRAMINE MALEATE [Concomitant]
     Active Substance: CHLORPHENIRAMINE MALEATE
     Indication: Pruritus
  11. KETOCONAZOLE [Concomitant]
     Active Substance: KETOCONAZOLE
     Indication: Seborrhoeic dermatitis
     Dosage: 2 UNK, QW (AS DIRECTED)
     Route: 061
     Dates: start: 20191128
  12. DICYCLOMINE HYDROCHLORIDE [Concomitant]
     Active Substance: DICYCLOMINE HYDROCHLORIDE
     Indication: Crohn^s disease
     Dosage: 30 MG
     Route: 048
     Dates: start: 20141201
  13. DICYCLOMINE HYDROCHLORIDE [Concomitant]
     Active Substance: DICYCLOMINE HYDROCHLORIDE
     Dosage: 10 MG
     Route: 065
     Dates: start: 20141201
  14. DOMPERIDONE MALEATE [Concomitant]
     Active Substance: DOMPERIDONE MALEATE
     Indication: Crohn^s disease
     Dosage: 30 MG, QD
     Route: 048
     Dates: start: 20200601, end: 20200608
  15. FOLIC ACID [Concomitant]
     Active Substance: FOLIC ACID
     Indication: Vitamin supplementation
     Dosage: 5 MG, QW
     Route: 048
     Dates: start: 20190629
  16. FUSIDIC ACID [Concomitant]
     Active Substance: FUSIDIC ACID
     Indication: Skin infection
     Dosage: 6 %, QD
     Route: 061
     Dates: start: 20190716
  17. POTASSIUM BICARBONATE\SODIUM ALGINATE [Concomitant]
     Active Substance: POTASSIUM BICARBONATE\SODIUM ALGINATE
     Indication: Gastrooesophageal reflux disease
     Dosage: 30 MG, QD
     Route: 048
     Dates: start: 20190802
  18. POTASSIUM BICARBONATE\SODIUM ALGINATE [Concomitant]
     Active Substance: POTASSIUM BICARBONATE\SODIUM ALGINATE
     Indication: Dyspepsia
  19. BUTYLSCOPOLAMINE BROMIDE [Concomitant]
     Active Substance: BUTYLSCOPOLAMINE BROMIDE
     Indication: Crohn^s disease
     Dosage: 10 MG, PRN
     Route: 048
     Dates: start: 20190407, end: 20200127
  20. BUTYLSCOPOLAMINE BROMIDE [Concomitant]
     Active Substance: BUTYLSCOPOLAMINE BROMIDE
     Indication: Prophylaxis
     Dosage: 20 MG, PRN
     Route: 042
     Dates: start: 20200619
  21. BUTYLSCOPOLAMINE BROMIDE [Concomitant]
     Active Substance: BUTYLSCOPOLAMINE BROMIDE
     Indication: Abdominal pain
  22. LACTULOSE [Concomitant]
     Active Substance: LACTULOSE
     Indication: Constipation
     Dosage: 40 MG, QD
     Route: 048
     Dates: start: 20200207, end: 20200211
  23. MOVICOL [Concomitant]
     Active Substance: POLYETHYLENE GLYCOL 3350\POTASSIUM CHLORIDE\SODIUM BICARBONATE\SODIUM CHLORIDE
     Indication: Constipation
     Dosage: 8 DOSAGE FORM, QD
     Route: 048
     Dates: start: 20191220, end: 20200207
  24. NUTRISON MULTIFIBRE [Concomitant]
     Indication: Nutritional supplementation
     Dosage: UNK (1800-2400 MLOVER 24 YEARS)
     Route: 050
     Dates: start: 20190701
  25. ONDANSETRON [Concomitant]
     Active Substance: ONDANSETRON
     Indication: Nausea
     Dosage: 16 MG, QD
     Route: 048
     Dates: start: 20190701
  26. ONDANSETRON [Concomitant]
     Active Substance: ONDANSETRON
     Indication: Vomiting
     Dosage: 16 MG, QD
     Route: 048
     Dates: start: 20190701
  27. ACETAMINOPHEN [Concomitant]
     Active Substance: ACETAMINOPHEN
     Indication: Analgesic therapy
     Dosage: 1 MG, PRN
     Route: 048
     Dates: start: 20190626
  28. ACETAMINOPHEN [Concomitant]
     Active Substance: ACETAMINOPHEN
     Indication: Analgesic therapy
  29. SODIUM PHOSPHATE [Concomitant]
     Active Substance: SODIUM PHOSPHATE
     Indication: Constipation
     Dosage: 100 MG (SINGLE DOSE FREQUENCY)
     Route: 054
     Dates: start: 20200211, end: 20200211
  30. SODIUM PICOSULFATE [Concomitant]
     Active Substance: SODIUM PICOSULFATE
     Indication: Laxative supportive care
     Dosage: 10 MG, QD
     Route: 048
     Dates: start: 20190308, end: 20190314
  31. SODIUM PICOSULFATE [Concomitant]
     Active Substance: SODIUM PICOSULFATE
     Indication: Crohn^s disease
     Dosage: 20 MG, QD
     Route: 048
     Dates: start: 20190315, end: 20190320
  32. SODIUM PICOSULFATE [Concomitant]
     Active Substance: SODIUM PICOSULFATE
     Indication: Constipation
     Dosage: 30 MG, QD
     Route: 048
     Dates: start: 20190320, end: 20190617
  33. SODIUM PICOSULFATE [Concomitant]
     Active Substance: SODIUM PICOSULFATE
     Dosage: 20 MG, QD
     Route: 048
     Dates: start: 20190709
  34. SODIUM PICOSULFATE [Concomitant]
     Active Substance: SODIUM PICOSULFATE
     Dosage: 20 MG, QD
     Route: 048
     Dates: start: 20200304, end: 20200308
  35. SODIUM PICOSULFATE [Concomitant]
     Active Substance: SODIUM PICOSULFATE
     Dosage: 15 MG, BID
     Route: 048
     Dates: start: 20190320, end: 20190617
  36. SODIUM PICOSULFATE [Concomitant]
     Active Substance: SODIUM PICOSULFATE
     Dosage: 5 MG, BID
     Route: 048
     Dates: start: 20190308
  37. SODIUM PICOSULFATE [Concomitant]
     Active Substance: SODIUM PICOSULFATE
     Dosage: 20 MG, QD
     Route: 048
     Dates: start: 20190315, end: 20190320
  38. ADALIMUMAB [Concomitant]
     Active Substance: ADALIMUMAB
     Indication: Crohn^s disease
     Dosage: 80 MG, QD
     Route: 058
     Dates: start: 20190820, end: 20190821
  39. ADALIMUMAB [Concomitant]
     Active Substance: ADALIMUMAB
     Indication: Vitamin supplementation
     Dosage: 80 MG (SINGLE DOSE)
     Route: 058
     Dates: start: 20190904, end: 20190904
  40. ADALIMUMAB [Concomitant]
     Active Substance: ADALIMUMAB
     Indication: Vitamin supplementation
     Dosage: 40 MG, Q2W
     Route: 058
     Dates: start: 20190918

REACTIONS (4)
  - Impetigo [Recovered/Resolved]
  - Crohn^s disease [Recovered/Resolved]
  - Constipation [Recovered/Resolved]
  - Product use in unapproved indication [Unknown]

NARRATIVE: CASE EVENT DATE: 20200402
